FAERS Safety Report 9416986 (Version 1)
Quarter: 2013Q3

REPORT INFORMATION
  Report Type: Spontaneous
  Country: US (occurrence: US)
  Receive Date: 20130724
  Receipt Date: 20130724
  Transmission Date: 20140515
  Serious: No
  Sender: FDA-Public Use
  Company Number: US-BAYER-2013-089290

PATIENT
  Sex: Female
  Weight: 61.68 kg

DRUGS (13)
  1. BETASERON [Suspect]
     Indication: MULTIPLE SCLEROSIS
     Dosage: 0.25 MG, QOD
     Route: 058
  2. ZANTAC [Concomitant]
     Dosage: 75 MG, UNK
  3. AMANTADINE [Concomitant]
     Dosage: 100 MG, UNK
  4. CARDURA [Concomitant]
     Dosage: 2 MG, UNK
  5. LEXAPRO [Concomitant]
     Dosage: 20 MG, UNK
  6. ZYRTEC [Concomitant]
     Dosage: 10 MG, UNK
  7. NEURONTIN [Concomitant]
     Dosage: 300 MG, UNK
  8. ANTIVERT [Concomitant]
     Dosage: 25 MG, UNK
  9. FLONASE [Concomitant]
     Dosage: 0.05 %, UNK
  10. MELATONIN [Concomitant]
     Dosage: 1 MG, UNK
  11. VENTOLIN HFA [Concomitant]
  12. TYLENOL [PARACETAMOL] [Concomitant]
     Dosage: 650 MG, TID
  13. ULTRAM [Concomitant]
     Dosage: 50 MG, UNK

REACTIONS (4)
  - Injection site scar [Unknown]
  - Injection site discolouration [Unknown]
  - Injection site pain [Unknown]
  - Injection site pruritus [Unknown]
